FAERS Safety Report 10722294 (Version 4)
Quarter: 2015Q1

REPORT INFORMATION
  Report Type: Report from Study
  Country: US (occurrence: US)
  Receive Date: 20150119
  Receipt Date: 20150326
  Transmission Date: 20150721
  Serious: Yes (Other)
  Sender: FDA-Public Use
  Company Number: US-GLAXOSMITHKLINE-US2014GSK047480

PATIENT
  Age: 44 Year
  Sex: Female
  Weight: 137.41 kg

DRUGS (32)
  1. HUMALOG KWIKPEN [Concomitant]
     Active Substance: INSULIN LISPRO
  2. MAGNESIUM OXIDE. [Concomitant]
     Active Substance: MAGNESIUM OXIDE
  3. PROTONIX [Concomitant]
     Active Substance: PANTOPRAZOLE SODIUM
  4. BELIMUMAB POWDER FOR INFUSION [Suspect]
     Active Substance: BELIMUMAB
     Indication: SYSTEMIC LUPUS ERYTHEMATOSUS
     Dosage: 1440MG CYCLIC EVERY 4 WEEKS
     Route: 042
     Dates: start: 20130311
  5. LIDOCAINE. [Concomitant]
     Active Substance: LIDOCAINE
  6. ASPIRIN. [Concomitant]
     Active Substance: ASPIRIN
  7. CARAFATE [Concomitant]
     Active Substance: SUCRALFATE
  8. OPANA ER [Concomitant]
     Active Substance: OXYMORPHONE HYDROCHLORIDE
  9. PREDNISONE. [Concomitant]
     Active Substance: PREDNISONE
  10. NEURONTIN [Concomitant]
     Active Substance: GABAPENTIN
  11. XANAX XR [Concomitant]
     Active Substance: ALPRAZOLAM
  12. CELLCEPT [Concomitant]
     Active Substance: MYCOPHENOLATE MOFETIL\MYCOPHENOLATE MOFETIL HYDROCHLORIDE
  13. TRAZODONE [Concomitant]
     Active Substance: TRAZODONE HYDROCHLORIDE
  14. NOVOLOG [Concomitant]
     Active Substance: INSULIN ASPART
  15. BACTRIM DS [Concomitant]
     Active Substance: SULFAMETHOXAZOLE\TRIMETHOPRIM
  16. CLONIDINE. [Concomitant]
     Active Substance: CLONIDINE
  17. METFORMIN [Concomitant]
     Active Substance: METFORMIN HYDROCHLORIDE
  18. LACTULOSE. [Concomitant]
     Active Substance: LACTULOSE
  19. VYTORIN [Concomitant]
     Active Substance: EZETIMIBE\SIMVASTATIN
  20. PLAQUENIL [Concomitant]
     Active Substance: HYDROXYCHLOROQUINE SULFATE
  21. KETOCONAZOLE. [Concomitant]
     Active Substance: KETOCONAZOLE
  22. SCOPOLAMINE PATCH [Concomitant]
     Active Substance: SCOPOLAMINE
  23. SINGULAIR [Concomitant]
     Active Substance: MONTELUKAST SODIUM
  24. TOPAMAX [Concomitant]
     Active Substance: TOPIRAMATE
  25. TRIAMCINOLONE ACETONIDE. [Concomitant]
     Active Substance: TRIAMCINOLONE ACETONIDE
  26. LEXAPRO [Concomitant]
     Active Substance: ESCITALOPRAM OXALATE
  27. ADVAIR DISKUS [Concomitant]
     Active Substance: FLUTICASONE PROPIONATE\SALMETEROL XINAFOATE
  28. EXFORGE [Concomitant]
     Active Substance: AMLODIPINE BESYLATE\VALSARTAN
  29. NORCO [Concomitant]
     Active Substance: ACETAMINOPHEN\HYDROCODONE BITARTRATE
  30. ROBAXIN [Concomitant]
     Active Substance: METHOCARBAMOL
  31. VITAMIN D3 [Concomitant]
     Active Substance: CHOLECALCIFEROL
  32. FERROUS SULFATE [Concomitant]
     Active Substance: FERROUS SULFATE\FERROUS SULFATE, DRIED

REACTIONS (15)
  - Pruritus [Recovered/Resolved]
  - C-reactive protein increased [Unknown]
  - Alanine aminotransferase increased [Unknown]
  - Aspartate aminotransferase increased [Unknown]
  - Cutaneous lupus erythematosus [Unknown]
  - Sinusitis [Unknown]
  - Drug ineffective [Unknown]
  - Complement factor C3 increased [Unknown]
  - Antinuclear antibody positive [Unknown]
  - Glucose urine present [Unknown]
  - Diabetes mellitus [Unknown]
  - Blood alkaline phosphatase increased [Unknown]
  - Gamma-glutamyltransferase increased [Unknown]
  - Red blood cell sedimentation rate abnormal [Unknown]
  - Urine ketone body present [Unknown]

NARRATIVE: CASE EVENT DATE: 20141229
